FAERS Safety Report 4668597-4 (Version None)
Quarter: 2005Q2

REPORT INFORMATION
  Report Type: 
  Country: None (occurrence: None)
  Receive Date: 20050519
  Receipt Date: 20050506
  Transmission Date: 20051028
  Serious: Yes (Life-Threatening, Other)
  Sender: FDA-Public Use
  Company Number: 2005047228

PATIENT
  Age: 56 Year
  Sex: Male
  Weight: 112.0385 kg

DRUGS (9)
  1. SOLU-MEDROL [Suspect]
     Indication: ILL-DEFINED DISORDER
     Dates: start: 20040501
  2. REBIF [Suspect]
     Indication: MULTIPLE SCLEROSIS
     Dosage: (3 IN 1 WK), SUBCUTANEOUS
     Route: 058
     Dates: start: 20040604
  3. DEPAKOTE [Concomitant]
  4. RITALIN [Concomitant]
  5. HYDROCHLOROTHIAZIDE [Concomitant]
  6. ZOCOR [Concomitant]
  7. ACIPHEX [Concomitant]
  8. ASPIRIN [Concomitant]
  9. VALPROIC ACID [Concomitant]

REACTIONS (7)
  - ANTICONVULSANT DRUG LEVEL DECREASED [None]
  - CONDITION AGGRAVATED [None]
  - DYSKINESIA [None]
  - GRAND MAL CONVULSION [None]
  - INFLUENZA LIKE ILLNESS [None]
  - RESPIRATORY ARREST [None]
  - TRANSIENT ISCHAEMIC ATTACK [None]
